FAERS Safety Report 9341323 (Version 3)
Quarter: 2014Q4

REPORT INFORMATION
  Report Type: Report from Study
  Country: US (occurrence: US)
  Receive Date: 20130611
  Receipt Date: 20141212
  Transmission Date: 20150529
  Serious: Yes (Other)
  Sender: FDA-Public Use
  Company Number: US-AMGEN-USASP2013040096

PATIENT
  Age: 45 Year
  Sex: Male

DRUGS (1)
  1. ENBREL [Suspect]
     Active Substance: ETANERCEPT
     Indication: PSORIASIS
     Dosage: 50 MG, QWK
     Route: 058
     Dates: start: 20130123, end: 20140221

REACTIONS (5)
  - Sinusitis [Recovered/Resolved]
  - Mass [Unknown]
  - Staphylococcal infection [Recovered/Resolved]
  - Swelling [Unknown]
  - Immune system disorder [Unknown]

NARRATIVE: CASE EVENT DATE: 201308
